FAERS Safety Report 7997758-1 (Version None)
Quarter: 2011Q4

REPORT INFORMATION
  Report Type: 
  Country: None (occurrence: None)
  Receive Date: 20111221
  Receipt Date: 20111219
  Transmission Date: 20120403
  Serious: Yes (Other)
  Sender: FDA-Public Use
  Company Number: US-BRISTOL-MYERS SQUIBB COMPANY-16301681

PATIENT
  Age: 49 Year
  Sex: Male

DRUGS (1)
  1. ORENCIA [Suspect]
     Dosage: LAST INFUSION:OCTOBER 2011

REACTIONS (1)
  - KNEE OPERATION [None]
